FAERS Safety Report 20937743 (Version 1)
Quarter: 2022Q2

REPORT INFORMATION
  Report Type: Spontaneous
  Country: DE (occurrence: DE)
  Receive Date: 20220609
  Receipt Date: 20220609
  Transmission Date: 20220721
  Serious: Yes (Other)
  Sender: FDA-Public Use
  Company Number: DE-SA-SAC20220606002188

PATIENT
  Age: 31 Year
  Sex: Male
  Weight: 74 kg

DRUGS (1)
  1. LEVOCETIRIZINE [Suspect]
     Active Substance: LEVOCETIRIZINE
     Indication: Seasonal allergy
     Dosage: 1 DF, QD
     Route: 048
     Dates: start: 202201, end: 20220516

REACTIONS (14)
  - Hypoaesthesia [Recovered/Resolved]
  - Formication [Recovered/Resolved]
  - Ejaculation delayed [Recovered/Resolved]
  - Micturition urgency [Recovered/Resolved]
  - Loss of libido [Recovered/Resolved]
  - Frequent bowel movements [Recovered/Resolved]
  - Sick leave [Unknown]
  - Urinary retention [Recovered/Resolved]
  - Dysuria [Recovered/Resolved]
  - Depression [Recovered/Resolved]
  - Fatigue [Unknown]
  - Paraesthesia [Recovered/Resolved]
  - Poor quality sleep [Recovered/Resolved]
  - Somnolence [Recovered/Resolved]
